FAERS Safety Report 5772971-2 (Version None)
Quarter: 2008Q2

REPORT INFORMATION
  Report Type: 
  Country: None (occurrence: None)
  Receive Date: 20080613
  Receipt Date: 20080602
  Transmission Date: 20081010
  Serious: Yes (Hospitalization)
  Sender: FDA-Public Use
  Company Number: FR-PFIZER INC-2008047707

PATIENT
  Sex: Male

DRUGS (2)
  1. CHANTIX [Suspect]
     Indication: SMOKING CESSATION THERAPY
     Dates: start: 20080521, end: 20080529
  2. BUPRENORPHINE HCL [Concomitant]

REACTIONS (5)
  - ABNORMAL BEHAVIOUR [None]
  - DELIRIUM [None]
  - INCOHERENT [None]
  - SUICIDAL IDEATION [None]
  - SUICIDE ATTEMPT [None]
